FAERS Safety Report 16058054 (Version 1)
Quarter: 2019Q1

REPORT INFORMATION
  Report Type: Report from Study
  Country: ES (occurrence: ES)
  Receive Date: 20190311
  Receipt Date: 20190311
  Transmission Date: 20190418
  Serious: Yes (Hospitalization, Other)
  Sender: FDA-Public Use
  Company Number: ES-SA-2019SA061733

PATIENT

DRUGS (2)
  1. INSULIN GLARGINE [Suspect]
     Active Substance: INSULIN GLARGINE
     Indication: TYPE 2 DIABETES MELLITUS
     Dosage: 20 IU, QD
     Route: 058
  2. INSULIN GLARGINE [Suspect]
     Active Substance: INSULIN GLARGINE
     Dosage: UNK
     Route: 058

REACTIONS (4)
  - Diverticulitis [Recovered/Resolved]
  - Dose calculation error [Unknown]
  - Hepatitis [Recovering/Resolving]
  - Hyperglycaemia [Recovered/Resolved]
